FAERS Safety Report 8875977 (Version 1)
Quarter: 2012Q4

REPORT INFORMATION
  Report Type: 
  Country: RS (occurrence: RS)
  Receive Date: 20121030
  Receipt Date: 20121030
  Transmission Date: 20130627
  Serious: Yes (Hospitalization)
  Sender: FDA-Public Use
  Company Number: PHHY2012RS096098

PATIENT
  Age: 18 Year
  Sex: Female

DRUGS (2)
  1. CARBAMAZEPINE [Suspect]
     Indication: EPILEPSY
     Dosage: 800 mg, daily
  2. VALPROIC ACID [Suspect]
     Indication: EPILEPSY
     Dosage: 750 mg, daily

REACTIONS (3)
  - Central nervous system lesion [Recovering/Resolving]
  - Convulsion [Unknown]
  - Drug ineffective [Unknown]
